FAERS Safety Report 7038390-6 (Version None)
Quarter: 2010Q4

REPORT INFORMATION
  Report Type: 
  Country: None (occurrence: None)
  Receive Date: 20101011
  Receipt Date: 20100521
  Transmission Date: 20110411
  Serious: No
  Sender: FDA-Public Use
  Company Number: US-PFIZER INC-2010056015

PATIENT
  Sex: Female
  Weight: 45 kg

DRUGS (2)
  1. NEURONTIN [Suspect]
     Indication: POST HERPETIC NEURALGIA
     Dosage: 600 MG TWO TABLETS, 2X/DAY
     Route: 048
  2. CELEBREX [Suspect]
     Indication: ADENOMATOUS POLYPOSIS COLI

REACTIONS (1)
  - SKIN LESION [None]
